FAERS Safety Report 18763235 (Version 2)
Quarter: 2021Q1

REPORT INFORMATION
  Report Type: Report from Study
  Country: US (occurrence: US)
  Receive Date: 20210120
  Receipt Date: 20210126
  Transmission Date: 20210419
  Serious: Yes (Other)
  Sender: FDA-Public Use
  Company Number: US-UCBSA-2021001322

PATIENT
  Sex: Male

DRUGS (1)
  1. BRIVARACETAM [Suspect]
     Active Substance: BRIVARACETAM
     Indication: SEIZURE
     Dosage: 150 MILLIGRAM, 2X/DAY (BID)

REACTIONS (2)
  - Deafness [Unknown]
  - Therapeutic response unexpected [Not Recovered/Not Resolved]
